FAERS Safety Report 16031136 (Version 2)
Quarter: 2019Q2

REPORT INFORMATION
  Report Type: Spontaneous
  Country: FI (occurrence: FI)
  Receive Date: 20190304
  Receipt Date: 20190429
  Transmission Date: 20190711
  Serious: Yes (Hospitalization, Other)
  Sender: FDA-Public Use
  Company Number: FI-NOVOPROD-648911

PATIENT
  Age: 12 Year
  Sex: Female

DRUGS (2)
  1. NOVORAPID [Suspect]
     Active Substance: INSULIN ASPART
     Indication: TYPE 1 DIABETES MELLITUS
     Dosage: INSULIN AT MEAL TIMES
     Route: 065
     Dates: start: 201311
  2. LEVEMIR [Suspect]
     Active Substance: INSULIN DETEMIR
     Indication: TYPE 1 DIABETES MELLITUS
     Dosage: 21 IU, QD (9IU+12IU)
     Route: 058
     Dates: start: 20131008, end: 20190125

REACTIONS (1)
  - Diabetes mellitus inadequate control [Unknown]
